FAERS Safety Report 9797183 (Version 1)
Quarter: 2014Q1

REPORT INFORMATION
  Report Type: Spontaneous
  Country: US (occurrence: US)
  Receive Date: 20140106
  Receipt Date: 20140106
  Transmission Date: 20141002
  Serious: Yes (Other)
  Sender: FDA-Public Use
  Company Number: PHHY2013US152315

PATIENT
  Age: 53 Year
  Sex: Female

DRUGS (1)
  1. VANCOMYCIN [Suspect]
     Indication: STAPHYLOCOCCAL INFECTION

REACTIONS (8)
  - Photosensitivity reaction [Recovered/Resolved]
  - Erythema [Recovered/Resolved]
  - Skin lesion [Recovered/Resolved]
  - Rash erythematous [Recovered/Resolved]
  - Lip swelling [Unknown]
  - Skin exfoliation [Unknown]
  - Burning sensation [Unknown]
  - Pruritus [Unknown]
